FAERS Safety Report 25929347 (Version 2)
Quarter: 2025Q4

REPORT INFORMATION
  Report Type: Spontaneous
  Country: TR (occurrence: TR)
  Receive Date: 20251016
  Receipt Date: 20251030
  Transmission Date: 20260118
  Serious: Yes (Hospitalization, Other)
  Sender: MACLEODS
  Company Number: TR-MLMSERVICE-20251006-PI664371-00105-1

PATIENT

DRUGS (12)
  1. CLOBETASOL [Suspect]
     Active Substance: CLOBETASOL
     Indication: Pain
     Dosage: FOR SEVERAL DAYS
     Route: 061
  2. CLOBETASOL [Suspect]
     Active Substance: CLOBETASOL
     Indication: Pruritus
  3. CLOBETASOL [Suspect]
     Active Substance: CLOBETASOL
     Indication: Erythema
  4. CLOBETASOL [Suspect]
     Active Substance: CLOBETASOL
     Indication: Pain
  5. CLOBETASOL [Suspect]
     Active Substance: CLOBETASOL
     Indication: Pruritus
  6. CLOBETASOL [Suspect]
     Active Substance: CLOBETASOL
     Indication: Erythema
  7. CLOBETASOL [Suspect]
     Active Substance: CLOBETASOL
     Indication: Pain
  8. CLOBETASOL [Suspect]
     Active Substance: CLOBETASOL
     Indication: Pruritus
  9. CLOBETASOL [Suspect]
     Active Substance: CLOBETASOL
     Indication: Erythema
  10. CLOBETASOL [Suspect]
     Active Substance: CLOBETASOL
     Indication: Pain
  11. CLOBETASOL [Suspect]
     Active Substance: CLOBETASOL
     Indication: Pruritus
  12. CLOBETASOL [Suspect]
     Active Substance: CLOBETASOL
     Indication: Erythema

REACTIONS (5)
  - Tinea infection [Recovered/Resolved with Sequelae]
  - Trichophytic granuloma [Recovered/Resolved with Sequelae]
  - Dermatophytosis [Recovered/Resolved with Sequelae]
  - Condition aggravated [Recovered/Resolved with Sequelae]
  - Intentional product misuse [Recovered/Resolved]
